FAERS Safety Report 5480084-2 (Version None)
Quarter: 2007Q4

REPORT INFORMATION
  Report Type: 
  Country: None (occurrence: None)
  Receive Date: 20071008
  Receipt Date: 20070928
  Transmission Date: 20080405
  Serious: Yes (Death, Hospitalization, Other)
  Sender: FDA-Public Use
  Company Number: US-PFIZER INC-2007081622

PATIENT
  Sex: Female
  Weight: 90.7 kg

DRUGS (3)
  1. CELEBREX [Suspect]
     Indication: PAIN MANAGEMENT
     Dates: start: 20030227, end: 20030701
  2. VIOXX [Suspect]
     Indication: OSTEOARTHRITIS
     Dosage: TEXT:25MG AND 50MG-FREQ:ONCE AND TWICE A DAY
     Dates: start: 20030201, end: 20030825
  3. HYDROCODONE [Concomitant]
     Indication: PAIN
     Dates: start: 20021123, end: 20040122

REACTIONS (4)
  - ANXIETY [None]
  - CARDIO-RESPIRATORY ARREST [None]
  - DEPRESSION [None]
  - ISCHAEMIC STROKE [None]
